FAERS Safety Report 24582502 (Version 1)
Quarter: 2024Q4

REPORT INFORMATION
  Report Type: Spontaneous
  Country: ES (occurrence: ES)
  Receive Date: 20241106
  Receipt Date: 20241106
  Transmission Date: 20250115
  Serious: Yes (Hospitalization)
  Sender: ROCHE
  Company Number: ES-ROCHE-10000120992

PATIENT
  Age: 63 Year
  Sex: Male

DRUGS (1)
  1. MOSUNETUZUMAB [Suspect]
     Active Substance: MOSUNETUZUMAB
     Indication: Follicular lymphoma refractory
     Route: 065
     Dates: start: 20240826

REACTIONS (2)
  - Septic shock [Unknown]
  - Hepatic failure [Unknown]
